FAERS Safety Report 18688108 (Version 1)
Quarter: 2020Q4

REPORT INFORMATION
  Report Type: Spontaneous
  Country: US (occurrence: US)
  Receive Date: 20201230
  Receipt Date: 20201230
  Transmission Date: 20210114
  Serious: Yes (Other)
  Sender: FDA-Public Use
  Company Number: None

PATIENT
  Age: 77 Year
  Sex: Female

DRUGS (1)
  1. ERTAPENEM. [Suspect]
     Active Substance: ERTAPENEM SODIUM
     Dates: start: 20201216, end: 20201217

REACTIONS (3)
  - Pruritus [None]
  - Haematoma [None]
  - Urticaria [None]

NARRATIVE: CASE EVENT DATE: 20201217
